FAERS Safety Report 15559187 (Version 2)
Quarter: 2018Q4

REPORT INFORMATION
  Report Type: Spontaneous
  Country: DE (occurrence: DE)
  Receive Date: 20181029
  Receipt Date: 20181103
  Transmission Date: 20190205
  Serious: Yes (Hospitalization, Other)
  Sender: FDA-Public Use
  Company Number: DE-AUROBINDO-AUR-APL-2018-051669

PATIENT
  Age: 16 Year
  Sex: Male

DRUGS (7)
  1. AMIODARONE [Suspect]
     Active Substance: AMIODARONE
     Indication: ARRHYTHMIA
     Dosage: 200 MILLIGRAM, DAILY FOR 5/WEEK
     Route: 065
  2. PREDNISONE. [Suspect]
     Active Substance: PREDNISONE
     Indication: HYPOTHYROIDISM
     Dosage: 40 MILLIGRAM, DAILY FOR 1 WEEK
     Route: 065
  3. AMIODARONE [Suspect]
     Active Substance: AMIODARONE
     Indication: MYOCARDITIS
     Dosage: SLOWLY REDUCED
     Route: 065
  4. PREDNISONE. [Suspect]
     Active Substance: PREDNISONE
     Indication: MYOCARDITIS
     Dosage: 20 MILLIGRAM, 2 X 20
     Route: 065
  5. METOPROLOL. [Suspect]
     Active Substance: METOPROLOL
     Indication: VENTRICULAR TACHYCARDIA
     Dosage: UNK
     Route: 065
  6. PREDNISONE. [Suspect]
     Active Substance: PREDNISONE
     Indication: VENTRICULAR TACHYCARDIA
     Dosage: 10 MILLIGRAM, 3 X 10
     Route: 065
  7. PREDNISONE. [Suspect]
     Active Substance: PREDNISONE
     Dosage: 30 MILLIGRAM, DAILY, STOPPED AFTER 9 MONTHS
     Route: 065

REACTIONS (5)
  - Hyperthyroidism [Recovered/Resolved]
  - Hyperhidrosis [Unknown]
  - Sleep disorder [Unknown]
  - Weight decreased [Unknown]
  - Thyroiditis [Recovering/Resolving]
